FAERS Safety Report 18994030 (Version 1)
Quarter: 2021Q1

REPORT INFORMATION
  Report Type: Other
  Country: BE (occurrence: BE)
  Receive Date: 20210311
  Receipt Date: 20210311
  Transmission Date: 20210420
  Serious: Yes (Other)
  Sender: FDA-Public Use
  Company Number: BE-MACLEODS PHARMACEUTICALS US LTD-MAC2021030419

PATIENT

DRUGS (3)
  1. DOVATO [Suspect]
     Active Substance: DOLUTEGRAVIR SODIUM\LAMIVUDINE
     Indication: HIV INFECTION
     Dosage: 50 MILLIGRAM, QD,1 COURSE, PRIOR TO CONCEPTION, FIRST TRIMESTER
     Route: 048
     Dates: start: 20200212, end: 20210214
  2. DOVATO [Suspect]
     Active Substance: DOLUTEGRAVIR SODIUM\LAMIVUDINE
     Dosage: 1 DOSAGE FORM, QD, 1 COURSE, 1 TABS/CAPS, FIRST TRIMESTER
     Route: 048
     Dates: start: 20210215
  3. LAMIVUDINE. [Suspect]
     Active Substance: LAMIVUDINE
     Indication: HIV INFECTION
     Dosage: 300 MILLIGRAM, QD, 1 COURSE, PRIOR TO CONCEPTION, FIRST TRIMESTER
     Route: 048
     Dates: start: 20200212, end: 20210214

REACTIONS (2)
  - Maternal exposure during pregnancy [Unknown]
  - Abortion induced [Unknown]

NARRATIVE: CASE EVENT DATE: 20210224
